FAERS Safety Report 7426231-4 (Version None)
Quarter: 2011Q2

REPORT INFORMATION
  Report Type: 
  Country: None (occurrence: None)
  Receive Date: 20110420
  Receipt Date: 20110418
  Transmission Date: 20111010
  Serious: Yes (Death, Hospitalization)
  Sender: FDA-Public Use
  Company Number: A0889192A

PATIENT
  Sex: Female

DRUGS (1)
  1. ROSIGLITAZONE MALEATE [Suspect]
     Dosage: 8MG PER DAY
     Route: 048
     Dates: start: 20000701, end: 20041005

REACTIONS (3)
  - CEREBROVASCULAR ACCIDENT [None]
  - CARDIAC DISORDER [None]
  - DEATH [None]
